FAERS Safety Report 6518133-2 (Version None)
Quarter: 2009Q4

REPORT INFORMATION
  Report Type: 
  Country: None (occurrence: None)
  Receive Date: 20091223
  Receipt Date: 20091223
  Transmission Date: 20100525
  Serious: Yes (Other)
  Sender: FDA-Public Use
  Company Number: None

PATIENT
  Age: 3 Year
  Sex: Female
  Weight: 10.49 kg

DRUGS (1)
  1. OXACILLIN [Suspect]
     Indication: LOCALISED INFECTION
     Dosage: 375MG EVERY 6 HOURS IV
     Route: 042
     Dates: start: 20091125, end: 20091220

REACTIONS (1)
  - RASH [None]
